FAERS Safety Report 9325272 (Version 3)
Quarter: 2013Q2

REPORT INFORMATION
  Report Type: Report from Study
  Country: CA (occurrence: CA)
  Receive Date: 20130604
  Receipt Date: 20130628
  Transmission Date: 20140414
  Serious: Yes (Other)
  Sender: FDA-Public Use
  Company Number: CA-ROCHE-1229027

PATIENT
  Age: 61 Year
  Sex: Female
  Weight: 86.6 kg

DRUGS (21)
  1. RITUXAN [Suspect]
     Indication: RHEUMATOID ARTHRITIS
     Route: 042
     Dates: start: 20130514
  2. ZOPLICONE (UNK INGREDIENTS) [Concomitant]
     Route: 065
  3. DIPHENHYDRAMINE HCL [Concomitant]
     Route: 048
     Dates: start: 20130515
  4. ACETAMINOPHEN [Concomitant]
     Route: 048
     Dates: start: 20130515
  5. METHYLPREDNISOLONE [Concomitant]
     Route: 042
     Dates: start: 20130515
  6. ARAVA [Concomitant]
     Route: 065
  7. PREDNISONE [Concomitant]
     Route: 065
  8. CIPRALEX [Concomitant]
     Route: 065
  9. CLONAZEPAM [Concomitant]
     Route: 065
  10. LORAZEPAM [Concomitant]
     Route: 065
  11. RAMIPRIL [Concomitant]
     Route: 065
  12. LASIX [Concomitant]
     Route: 065
  13. NITRO PATCH [Concomitant]
     Route: 065
  14. TYLENOL #3 (CANADA) [Concomitant]
     Route: 065
  15. AMLODIPINE [Concomitant]
     Route: 065
  16. NEXIUM [Concomitant]
     Route: 065
  17. WARFARIN [Concomitant]
     Dosage: 2MG/3MG
     Route: 065
  18. SPIRIVA [Concomitant]
     Route: 065
  19. ADVAIR [Concomitant]
     Route: 065
  20. VENTOLIN [Concomitant]
     Route: 065
  21. OXYGEN [Concomitant]

REACTIONS (5)
  - International normalised ratio increased [Recovered/Resolved]
  - Localised infection [Recovered/Resolved]
  - Diarrhoea [Not Recovered/Not Resolved]
  - Asthenia [Not Recovered/Not Resolved]
  - Hypotension [Recovered/Resolved]
